FAERS Safety Report 8791478 (Version 1)
Quarter: 2012Q4

REPORT INFORMATION
  Report Type: Spontaneous
  Country: US (occurrence: None)
  Receive Date: 20120914
  Receipt Date: 20120914
  Transmission Date: 20130627
  Serious: No
  Sender: FDA-Public Use
  Company Number: None

PATIENT
  Sex: Female
  Weight: 72.58 kg

DRUGS (1)
  1. AMLODIPINE [Suspect]
     Dates: start: 20120817, end: 20120829

REACTIONS (8)
  - Palpitations [None]
  - Dyspnoea [None]
  - Cough [None]
  - Oedema peripheral [None]
  - Headache [None]
  - Fatigue [None]
  - Somnolence [None]
  - Renal pain [None]
